FAERS Safety Report 7240404-5 (Version None)
Quarter: 2011Q1

REPORT INFORMATION
  Report Type: 
  Country: None (occurrence: None)
  Receive Date: 20110119
  Receipt Date: 20110119
  Transmission Date: 20110831
  Serious: Yes (Hospitalization)
  Sender: FDA-Public Use
  Company Number: None

PATIENT
  Sex: Female
  Weight: 79.3795 kg

DRUGS (3)
  1. METHOTREXATE [Concomitant]
  2. PREDNISONE [Concomitant]
  3. TOCILIZUMAB [Suspect]
     Indication: RHEUMATOID ARTHRITIS
     Dosage: 800 MG EVERY MONTH
     Dates: start: 20100501, end: 20101001

REACTIONS (3)
  - ABSCESS SOFT TISSUE [None]
  - CULTURE WOUND POSITIVE [None]
  - STAPHYLOCOCCAL INFECTION [None]
